FAERS Safety Report 11992304 (Version 1)
Quarter: 2016Q1

REPORT INFORMATION
  Report Type: Spontaneous
  Country: US (occurrence: US)
  Receive Date: 20160203
  Receipt Date: 20160203
  Transmission Date: 20160526
  Serious: No
  Sender: FDA-Public Use
  Company Number: US-JNJFOC-20160105456

PATIENT
  Age: 77 Year
  Sex: Male
  Weight: 108.86 kg

DRUGS (2)
  1. TYLENOL EXTRA STRENGTH [Suspect]
     Active Substance: ACETAMINOPHEN
     Indication: PAIN
     Dosage: 1X PER DAY BEFORE BED
     Route: 048
  2. TYLENOL EXTRA STRENGTH [Suspect]
     Active Substance: ACETAMINOPHEN
     Indication: PAIN
     Dosage: 1X PER DAY BEFORE BED
     Route: 048

REACTIONS (2)
  - Insomnia [Recovered/Resolved]
  - Inappropriate schedule of drug administration [Recovered/Resolved]
